FAERS Safety Report 4700173-7 (Version None)
Quarter: 2005Q2

REPORT INFORMATION
  Report Type: 
  Country: None (occurrence: None)
  Receive Date: 20050624
  Receipt Date: 20050624
  Transmission Date: 20051028
  Serious: Yes (Other)
  Sender: FDA-Public Use
  Company Number: None

PATIENT
  Age: 33 Year
  Sex: Female
  Weight: 109.7705 kg

DRUGS (1)
  1. LEVAQUIN [Suspect]
     Indication: SINUSITIS
     Dosage: 1    1 X DAY   ORAL
     Route: 048
     Dates: start: 20050621, end: 20050621

REACTIONS (10)
  - ASTHENIA [None]
  - BURNING SENSATION [None]
  - CHILLS [None]
  - FACE OEDEMA [None]
  - FEELING HOT [None]
  - HYPERAESTHESIA [None]
  - OEDEMA PERIPHERAL [None]
  - PRURITUS [None]
  - RASH ERYTHEMATOUS [None]
  - SWELLING [None]
